FAERS Safety Report 7793093-5 (Version None)
Quarter: 2011Q4

REPORT INFORMATION
  Report Type: 
  Country: None (occurrence: None)
  Receive Date: 20111003
  Receipt Date: 20110921
  Transmission Date: 20120403
  Serious: Yes (Hospitalization)
  Sender: FDA-Public Use
  Company Number: US-BAYER-2010-003058

PATIENT
  Age: 22 Year
  Sex: Female
  Weight: 86 kg

DRUGS (3)
  1. SINGULAIR [Concomitant]
     Indication: ASTHMA
     Dosage: UNK
     Dates: start: 20090101, end: 20100101
  2. PROAIR HFA [Concomitant]
     Indication: ASTHMA
  3. YAZ [Suspect]
     Indication: MENSTRUATION IRREGULAR
     Dosage: UNK
     Route: 048
     Dates: start: 20061101, end: 20090801

REACTIONS (5)
  - CHOLECYSTECTOMY [None]
  - BILIARY DYSKINESIA [None]
  - CHOLESTEROSIS [None]
  - CHOLECYSTITIS CHRONIC [None]
  - PAIN [None]
